FAERS Safety Report 17259344 (Version 1)
Quarter: 2020Q1

REPORT INFORMATION
  Report Type: Spontaneous
  Country: US (occurrence: US)
  Receive Date: 20200110
  Receipt Date: 20200110
  Transmission Date: 20200409
  Serious: No
  Sender: FDA-Public Use
  Company Number: US-SA-2019SA346405

PATIENT
  Sex: Female

DRUGS (1)
  1. PRALUENT [Suspect]
     Active Substance: ALIROCUMAB
     Indication: ACUTE MYOCARDIAL INFARCTION
     Dosage: 75 MG/ML, QOW
     Route: 058
     Dates: start: 20191220

REACTIONS (3)
  - Product dose omission [Unknown]
  - Unevaluable event [Not Recovered/Not Resolved]
  - Oropharyngeal pain [Recovered/Resolved]
